FAERS Safety Report 5622575-7 (Version None)
Quarter: 2008Q1

REPORT INFORMATION
  Report Type: 
  Country: None (occurrence: None)
  Receive Date: 20080114
  Receipt Date: 20070209
  Transmission Date: 20080703
  Serious: Yes (Other)
  Sender: FDA-Public Use
  Company Number: A03200501717

PATIENT
  Age: 74 Year
  Sex: Female
  Weight: 78.9259 kg

DRUGS (2)
  1. PLAVIX [Suspect]
     Indication: CEREBROVASCULAR ACCIDENT
     Dosage: 75 MG QD - ORAL
     Route: 048
     Dates: start: 20020101, end: 20020101
  2. ACETYLSALICYLIC ACID SRT [Concomitant]

REACTIONS (1)
  - CEREBROVASCULAR ACCIDENT [None]
